FAERS Safety Report 12311860 (Version 1)
Quarter: 2016Q2

REPORT INFORMATION
  Report Type: Not Available
  Country: None (occurrence: US)
  Receive Date: 20160427
  Receipt Date: 20160427
  Transmission Date: 20160902
  Serious: No
  Sender: FDA-Public Use
  Company Number: US-AKORN-15408

PATIENT
  Age: 83 Year
  Sex: Female

DRUGS (1)
  1. LATANOPROST OPHTHALMIC SOLUTION [Suspect]
     Active Substance: LATANOPROST

REACTIONS (3)
  - Eye irritation [None]
  - Photophobia [None]
  - Eye pain [None]
